FAERS Safety Report 5737486-6 (Version None)
Quarter: 2008Q2

REPORT INFORMATION
  Report Type: 
  Country: None (occurrence: None)
  Receive Date: 20080514
  Receipt Date: 20080507
  Transmission Date: 20081010
  Serious: Yes (Other)
  Sender: FDA-Public Use
  Company Number: GB-TEVA-171334ISR

PATIENT
  Age: 9 Year
  Sex: Female
  Weight: 37 kg

DRUGS (2)
  1. PHENYTOIN [Suspect]
     Indication: CONVULSION
     Dates: start: 20080131, end: 20080218
  2. SIROLIMUS [Interacting]
     Indication: RENAL TRANSPLANT
     Dates: start: 20060705, end: 20080211

REACTIONS (2)
  - DRUG INTERACTION [None]
  - DRUG LEVEL BELOW THERAPEUTIC [None]
